FAERS Safety Report 5947953-8 (Version None)
Quarter: 2008Q4

REPORT INFORMATION
  Report Type: 
  Country: None (occurrence: None)
  Receive Date: 20081111
  Receipt Date: 20081007
  Transmission Date: 20090506
  Serious: No
  Sender: FDA-Public Use
  Company Number: A0750828A

PATIENT
  Age: 33 Year
  Sex: Male

DRUGS (3)
  1. TREXIMET [Suspect]
     Indication: MIGRAINE
     Dosage: 1TAB WEEKLY
     Route: 048
     Dates: start: 20080701
  2. DEPAKOTE [Concomitant]
  3. ZYBAN [Concomitant]

REACTIONS (1)
  - DRUG SCREEN FALSE POSITIVE [None]
